FAERS Safety Report 13614066 (Version 1)
Quarter: 2017Q2

REPORT INFORMATION
  Report Type: Other
  Country: IT (occurrence: IT)
  Receive Date: 20170606
  Receipt Date: 20170606
  Transmission Date: 20170830
  Serious: Yes (Hospitalization, Other)
  Sender: FDA-Public Use
  Company Number: IT-ORCHID HEALTHCARE-2021590

PATIENT
  Age: 65 Year
  Sex: Male

DRUGS (10)
  1. POTASSIUM CHLORIDE. [Concomitant]
     Active Substance: POTASSIUM CHLORIDE
     Route: 065
  2. PANTOPRAZOLE SODIUM. [Suspect]
     Active Substance: PANTOPRAZOLE SODIUM
     Indication: GASTRITIS
     Route: 065
  3. CLOPIDOGREL [Concomitant]
     Active Substance: CLOPIDOGREL BISULFATE
     Route: 065
  4. METFORMIN [Concomitant]
     Active Substance: METFORMIN HYDROCHLORIDE
     Route: 065
  5. NEBIVOLOL. [Concomitant]
     Active Substance: NEBIVOLOL
     Route: 065
  6. CALCIUM CARBONATE. [Concomitant]
     Active Substance: CALCIUM CARBONATE
     Route: 065
  7. DOXAZOSIN [Concomitant]
     Active Substance: DOXAZOSIN\DOXAZOSIN MESYLATE
     Route: 065
  8. VALSARTAN. [Concomitant]
     Active Substance: VALSARTAN
     Route: 065
  9. SILODOSIN [Concomitant]
     Active Substance: SILODOSIN
     Route: 065
  10. EXTRACT OF SERENOA REPENS (PERMIXON) [Concomitant]
     Route: 065

REACTIONS (8)
  - Hypocalcaemia [Recovered/Resolved]
  - Hypokalaemia [Recovered/Resolved]
  - Cerebellar ischaemia [Recovered/Resolved]
  - Vertigo [Recovered/Resolved]
  - Hypomagnesaemia [Recovered/Resolved]
  - Vasculitis cerebral [Recovered/Resolved]
  - Hypoparathyroidism [Recovered/Resolved]
  - Seizure [Recovered/Resolved]
